FAERS Safety Report 8354556-7 (Version None)
Quarter: 2012Q2

REPORT INFORMATION
  Report Type: 
  Country: None (occurrence: None)
  Receive Date: 20120510
  Receipt Date: 20120423
  Transmission Date: 20120825
  Serious: Yes (Death)
  Sender: FDA-Public Use
  Company Number: ADR-UNK-054

PATIENT

DRUGS (3)
  1. RALTEGRAVIR(ISENTRSS,RAL) [Concomitant]
  2. EFAVIRENZ [Suspect]
     Indication: ACQUIRED IMMUNODEFICIENCY SYNDROME
     Dosage: 1 COURSE 1200MG/DAY ORAL
     Route: 048
     Dates: start: 20061211, end: 20110710
  3. TENOFOVIR DISOPROXIL FUMARATE+EMTRICITABINE(TRUVADA TVD) [Concomitant]

REACTIONS (3)
  - PREGNANCY [None]
  - ABORTION SPONTANEOUS [None]
  - MATERNAL EXPOSURE DURING PREGNANCY [None]
